FAERS Safety Report 7608078-9 (Version None)
Quarter: 2011Q3

REPORT INFORMATION
  Report Type: 
  Country: None (occurrence: None)
  Receive Date: 20110705
  Receipt Date: 20110628
  Transmission Date: 20111222
  Serious: Yes (Death)
  Sender: FDA-Public Use
  Company Number: 2011001643

PATIENT
  Age: 73 Year
  Sex: Female

DRUGS (2)
  1. TARCEVA [Suspect]
     Dosage: 100 MG, UID/QD, ORAL
     Route: 048
     Dates: start: 20110308
  2. TARCEVA [Suspect]
     Indication: PANCREATIC CARCINOMA
     Dosage: 25 MG, UID/QD, ORAL
     Route: 048
     Dates: start: 20110308

REACTIONS (8)
  - OEDEMA PERIPHERAL [None]
  - PAIN IN EXTREMITY [None]
  - SKIN FISSURES [None]
  - ABDOMINAL PAIN [None]
  - DIARRHOEA [None]
  - ASTHENIA [None]
  - FATIGUE [None]
  - ANAL HAEMORRHAGE [None]
